FAERS Safety Report 10945521 (Version 2)
Quarter: 2015Q2

REPORT INFORMATION
  Report Type: Spontaneous
  Country: US (occurrence: None)
  Receive Date: 20150318
  Receipt Date: 20150504
  Transmission Date: 20150821
  Serious: Yes (Hospitalization)
  Sender: FDA-Public Use
  Company Number: 1713747-2015-99954

PATIENT
  Age: 37 Year
  Sex: Female
  Weight: 66 kg

DRUGS (26)
  1. GRANUFLO [Concomitant]
     Active Substance: ACETIC ACID\SODIUM ACETATE
  2. EPOGEN [Concomitant]
     Active Substance: ERYTHROPOIETIN
  3. NORMAL SALINE [Concomitant]
     Active Substance: SODIUM CHLORIDE
  4. NORVASC [Concomitant]
     Active Substance: AMLODIPINE BESYLATE
  5. NATURALYTE [Concomitant]
     Active Substance: ACETIC ACID\SODIUM ACETATE
  6. NEPHRO-CAPS [Concomitant]
  7. LISINOPRIL. [Concomitant]
     Active Substance: LISINOPRIL
  8. 0.9% SODIUM CHLORIDE INJECTION, USP [Suspect]
     Active Substance: SODIUM CHLORIDE
     Indication: CHRONIC KIDNEY DISEASE
     Dosage: HEMODIALYSIS
     Dates: start: 20121031
  9. FRESENIUS 2008K DIALYSIS MACHINE [Concomitant]
     Active Substance: DEVICE
  10. TUMS [Concomitant]
     Active Substance: CALCIUM CARBONATE
  11. BABY ASPIRIN [Concomitant]
     Active Substance: ASPIRIN
  12. GABAPENTIN. [Concomitant]
     Active Substance: GABAPENTIN
  13. FMC BLOOD LINES [Concomitant]
     Active Substance: DEVICE
  14. ZEMPLAR [Concomitant]
     Active Substance: PARICALCITOL
  15. SODIUM BICARBONATE. [Concomitant]
     Active Substance: SODIUM BICARBONATE
  16. NEURONTIN [Concomitant]
     Active Substance: GABAPENTIN
  17. 180NRE OPTIFLUX [Concomitant]
     Active Substance: DEVICE
  18. RENVELA [Concomitant]
     Active Substance: SEVELAMER CARBONATE
  19. TRAZODONE [Concomitant]
     Active Substance: TRAZODONE HYDROCHLORIDE
  20. ZOLOFT [Concomitant]
     Active Substance: SERTRALINE HYDROCHLORIDE
  21. CALCIFEROL [Concomitant]
     Active Substance: ERGOCALCIFEROL
  22. COREG [Concomitant]
     Active Substance: CARVEDILOL
  23. LOVENOX [Concomitant]
     Active Substance: ENOXAPARIN SODIUM
  24. COUMADIN [Concomitant]
     Active Substance: WARFARIN SODIUM
  25. HUMALOG [Concomitant]
     Active Substance: INSULIN LISPRO
  26. INUSLIN LANTUS [Concomitant]

REACTIONS (5)
  - Unresponsive to stimuli [None]
  - Heart rate increased [None]
  - Dialysis [None]
  - Hypertension [None]
  - Feeling abnormal [None]

NARRATIVE: CASE EVENT DATE: 20121031
